FAERS Safety Report 19989035 (Version 4)
Quarter: 2022Q2

REPORT INFORMATION
  Report Type: Report from Study
  Country: CA (occurrence: CA)
  Receive Date: 20211024
  Receipt Date: 20220628
  Transmission Date: 20220720
  Serious: Yes (Hospitalization, Other)
  Sender: FDA-Public Use
  Company Number: CA-ABBVIE-21K-028-4128372-00

PATIENT
  Sex: Female

DRUGS (1)
  1. HUMIRA [Suspect]
     Active Substance: ADALIMUMAB
     Indication: Crohn^s disease
     Route: 058
     Dates: start: 20180509

REACTIONS (16)
  - Seizure [Unknown]
  - Cerebrovascular accident [Unknown]
  - Diarrhoea [Recovered/Resolved]
  - Female genital tract fistula [Not Recovered/Not Resolved]
  - Dyschezia [Unknown]
  - Anal stenosis [Unknown]
  - Erosive duodenitis [Unknown]
  - Hypophagia [Not Recovered/Not Resolved]
  - Anorectal disorder [Not Recovered/Not Resolved]
  - Eye disorder [Unknown]
  - Vision blurred [Unknown]
  - Epigastric discomfort [Not Recovered/Not Resolved]
  - Blood urine present [Unknown]
  - Pain [Not Recovered/Not Resolved]
  - Urinary tract infection [Unknown]
  - Rectal haemorrhage [Unknown]

NARRATIVE: CASE EVENT DATE: 20210101
